FAERS Safety Report 17318101 (Version 1)
Quarter: 2020Q1

REPORT INFORMATION
  Report Type: Spontaneous
  Country: CA (occurrence: CA)
  Receive Date: 20200124
  Receipt Date: 20200124
  Transmission Date: 20200409
  Serious: Yes (Other)
  Sender: FDA-Public Use
  Company Number: CA-ABBVIE-20K-028-3244688-00

PATIENT
  Age: 45 Year
  Sex: Female

DRUGS (1)
  1. HUMIRA [Suspect]
     Active Substance: ADALIMUMAB
     Indication: PRODUCT USED FOR UNKNOWN INDICATION
     Route: 058
     Dates: start: 2017

REACTIONS (8)
  - Scar [Unknown]
  - Hyperkeratosis [Unknown]
  - Breast abscess [Unknown]
  - Bacterial infection [Unknown]
  - Acne [Unknown]
  - Fistula [Unknown]
  - Nodule [Recovering/Resolving]
  - Inflammation [Recovering/Resolving]
